FAERS Safety Report 17866959 (Version 3)
Quarter: 2020Q3

REPORT INFORMATION
  Report Type: Spontaneous
  Country: US (occurrence: US)
  Receive Date: 20200605
  Receipt Date: 20200911
  Transmission Date: 20201103
  Serious: Yes (Other)
  Sender: FDA-Public Use
  Company Number: US-BIOMARINAP-US-2020-130118

PATIENT
  Age: 21 Year

DRUGS (2)
  1. ALDURAZYME [Suspect]
     Active Substance: LARONIDASE
     Indication: MUCOPOLYSACCHARIDOSIS I
     Dosage: 20.3 MILLIGRAM, QW
     Route: 042
     Dates: start: 20111207
  2. ALDURAZYME [Suspect]
     Active Substance: LARONIDASE
     Dosage: 20.3 MILLIGRAM, QW
     Route: 042
     Dates: start: 20190523

REACTIONS (8)
  - Pain [Recovering/Resolving]
  - Cardiac operation [Unknown]
  - Poor venous access [Unknown]
  - Postoperative wound complication [Recovering/Resolving]
  - Product use issue [Unknown]
  - Wound dehiscence [Recovering/Resolving]
  - Neck surgery [Recovering/Resolving]
  - Arthritis [Recovering/Resolving]
